FAERS Safety Report 6032512-1 (Version None)
Quarter: 2009Q1

REPORT INFORMATION
  Report Type: 
  Country: None (occurrence: None)
  Receive Date: 20090109
  Receipt Date: 20081020
  Transmission Date: 20090719
  Serious: No
  Sender: FDA-Public Use
  Company Number: A0753272A

PATIENT
  Sex: Female

DRUGS (2)
  1. TYKERB [Suspect]
     Indication: DRUG USE FOR UNKNOWN INDICATION
     Route: 048
  2. XELODA [Suspect]
     Indication: DRUG USE FOR UNKNOWN INDICATION
     Route: 065

REACTIONS (2)
  - ADVERSE EVENT [None]
  - DYSPNOEA [None]
